FAERS Safety Report 7659621-5 (Version None)
Quarter: 2011Q3

REPORT INFORMATION
  Report Type: 
  Country: None (occurrence: None)
  Receive Date: 20110805
  Receipt Date: 20110803
  Transmission Date: 20111222
  Serious: Yes (Hospitalization, Other)
  Sender: FDA-Public Use
  Company Number: US-MERCK-1006USA03830

PATIENT
  Age: 65 Year
  Sex: Female
  Weight: 73 kg

DRUGS (4)
  1. ALENDRONATE SODIUM [Suspect]
     Route: 065
     Dates: start: 20081001
  2. EVISTA [Concomitant]
     Indication: HORMONE REPLACEMENT THERAPY
     Route: 048
  3. FOSAMAX [Suspect]
     Indication: OSTEOPOROSIS
     Route: 048
     Dates: start: 19980201, end: 20070101
  4. FOSAMAX [Suspect]
     Route: 048
     Dates: start: 20070101, end: 20090908

REACTIONS (46)
  - VAGINAL INFECTION [None]
  - URINARY TRACT INFECTION [None]
  - CATARACT [None]
  - BACK PAIN [None]
  - HAEMORRHOIDS [None]
  - HYPOACUSIS [None]
  - GASTROOESOPHAGEAL REFLUX DISEASE [None]
  - TOOTH DISORDER [None]
  - INSOMNIA [None]
  - VISION BLURRED [None]
  - OSTEITIS [None]
  - FATIGUE [None]
  - PYREXIA [None]
  - BLINDNESS [None]
  - ANXIETY [None]
  - OSTEOMA [None]
  - FOOT DEFORMITY [None]
  - STOMATITIS [None]
  - PURULENCE [None]
  - POLLAKIURIA [None]
  - OSTEONECROSIS OF JAW [None]
  - ANAEMIA [None]
  - ARTHRALGIA [None]
  - HYPERLIPIDAEMIA [None]
  - OSTEOARTHRITIS [None]
  - GASTROINTESTINAL DISORDER [None]
  - SCOLIOSIS [None]
  - RASH [None]
  - UPPER-AIRWAY COUGH SYNDROME [None]
  - CHRONIC SINUSITIS [None]
  - DERMATITIS [None]
  - DIVERTICULUM [None]
  - OSTEONECROSIS [None]
  - MENISCUS LESION [None]
  - NEPHROLITHIASIS [None]
  - MUSCULOSKELETAL PAIN [None]
  - MUCOSAL INFLAMMATION [None]
  - FEMUR FRACTURE [None]
  - DEAFNESS [None]
  - ORAL TORUS [None]
  - VITAMIN D DEFICIENCY [None]
  - ARTHRITIS [None]
  - SCIATICA [None]
  - DROOLING [None]
  - FAECAL INCONTINENCE [None]
  - FALL [None]
